FAERS Safety Report 10005650 (Version 1)
Quarter: 2014Q1

REPORT INFORMATION
  Report Type: Spontaneous
  Country: US (occurrence: US)
  Receive Date: 20140313
  Receipt Date: 20140313
  Transmission Date: 20141002
  Serious: No
  Sender: FDA-Public Use
  Company Number: US-BIOGENIDEC-2014BI021116

PATIENT
  Age: 60 Year
  Sex: Female

DRUGS (22)
  1. TECFIDERA [Suspect]
     Indication: MULTIPLE SCLEROSIS
     Route: 048
     Dates: start: 20130530
  2. BACLOFEN [Concomitant]
  3. BETHANECHOL CHLORIDE [Concomitant]
  4. CALCIUM 500 +D [Concomitant]
  5. CLONAZEPAM [Concomitant]
  6. COLACE [Concomitant]
  7. FLUDROCORTISONE ACETATE [Concomitant]
  8. GABAPENTIN [Concomitant]
  9. IMODIUM A-D [Concomitant]
  10. LASIX [Concomitant]
  11. LORTAB [Concomitant]
  12. MAGNESIUM OXIDE [Concomitant]
  13. MICRO-K [Concomitant]
  14. MIDODRINE HCI [Concomitant]
  15. NITROGLYCERIN [Concomitant]
  16. PLAVIX [Concomitant]
  17. PREDNISONE [Concomitant]
  18. PROLIA [Concomitant]
  19. REQUIP [Concomitant]
  20. SYNTHROID [Concomitant]
  21. TRAZODONE HCI [Concomitant]
  22. ZOCOR [Concomitant]

REACTIONS (2)
  - Muscular weakness [Unknown]
  - Fall [Recovered/Resolved]
